FAERS Safety Report 8812240 (Version 1)
Quarter: 2012Q4

REPORT INFORMATION
  Report Type: 
  Country: TH (occurrence: TH)
  Receive Date: 20120927
  Receipt Date: 20120927
  Transmission Date: 20130627
  Serious: Yes (Death, Hospitalization)
  Sender: FDA-Public Use
  Company Number: TH-BAXTER-2012BAX017968

PATIENT
  Sex: Male

DRUGS (1)
  1. DIANEAL PD4 LOW CALCIUM WITH 1.5% DEXTROSE [Suspect]
     Indication: AUTOMATED PERITONEAL DIALYSIS
     Route: 033
     Dates: start: 20110729, end: 20120915

REACTIONS (1)
  - Cardiovascular disorder [Fatal]
